FAERS Safety Report 4429765-X (Version None)
Quarter: 2004Q3

REPORT INFORMATION
  Report Type: 
  Country: None (occurrence: None)
  Receive Date: 20040817
  Receipt Date: 20040811
  Transmission Date: 20050211
  Serious: Yes (Other)
  Sender: FDA-Public Use
  Company Number: S04-USA-04853-01

PATIENT
  Age: 30 Year
  Sex: Female

DRUGS (3)
  1. CELEXA [Suspect]
     Indication: DEPRESSION
     Dosage: 40 MG QD PO
     Route: 048
     Dates: start: 20040101
  2. ALCOHOL [Suspect]
     Dates: start: 20030101, end: 20030101
  3. DEPAKOTE [Concomitant]

REACTIONS (3)
  - BREATH ALCOHOL TEST POSITIVE [None]
  - DRUG INTERACTION [None]
  - IMPAIRED DRIVING ABILITY [None]
